FAERS Safety Report 15159427 (Version 3)
Quarter: 2018Q4

REPORT INFORMATION
  Report Type: Spontaneous
  Country: CO (occurrence: CO)
  Receive Date: 20180718
  Receipt Date: 20181106
  Transmission Date: 20190204
  Serious: Yes (Hospitalization)
  Sender: FDA-Public Use
  Company Number: CO-BIOVITRUM-2018BV000467

PATIENT
  Age: 5 Year
  Sex: Male
  Weight: 21.5 kg

DRUGS (3)
  1. ALPROLIX [Suspect]
     Active Substance: EFTRENONACOG ALFA
     Dosage: PRN WHEN NECESSARY
     Route: 042
     Dates: start: 20180706
  2. ALPROLIX [Suspect]
     Active Substance: EFTRENONACOG ALFA
     Dosage: PRN WHEN NECESSARY
     Route: 042
     Dates: start: 20180707
  3. ALPROLIX [Suspect]
     Active Substance: EFTRENONACOG ALFA
     Indication: FACTOR IX DEFICIENCY
     Dosage: PROPHYLACTIC TREATMENT
     Route: 042
     Dates: start: 20180702

REACTIONS (5)
  - Urine abnormality [Unknown]
  - Pain in extremity [Unknown]
  - Gait disturbance [Unknown]
  - Ecchymosis [Unknown]
  - Mobility decreased [Unknown]

NARRATIVE: CASE EVENT DATE: 20180706
